FAERS Safety Report 4766667-3 (Version None)
Quarter: 2005Q3

REPORT INFORMATION
  Report Type: 
  Country: None (occurrence: None)
  Receive Date: 20050912
  Receipt Date: 20050825
  Transmission Date: 20060218
  Serious: Yes (Hospitalization)
  Sender: FDA-Public Use
  Company Number: 190375

PATIENT
  Age: 76 Year
  Sex: Female

DRUGS (1)
  1. AVONEX [Suspect]
     Indication: MULTIPLE SCLEROSIS
     Dosage: 30 UG; QW; IM
     Route: 030
     Dates: end: 20031123

REACTIONS (6)
  - ABASIA [None]
  - CONDITION AGGRAVATED [None]
  - LOSS OF CONTROL OF LEGS [None]
  - MULTIPLE SCLEROSIS [None]
  - PULMONARY EMBOLISM [None]
  - THROMBOSIS [None]
